FAERS Safety Report 6117064-X (Version None)
Quarter: 2009Q1

REPORT INFORMATION
  Report Type: 
  Country: None (occurrence: None)
  Receive Date: 20090314
  Receipt Date: 20090106
  Transmission Date: 20090719
  Serious: No
  Sender: FDA-Public Use
  Company Number: US-ABBOTT-09P-163-0496148-00

PATIENT
  Sex: Female
  Weight: 76.272 kg

DRUGS (3)
  1. HUMIRA [Suspect]
     Indication: RHEUMATOID ARTHRITIS
     Route: 058
     Dates: start: 20040101, end: 20081111
  2. HUMIRA [Suspect]
     Route: 058
     Dates: start: 20081111
  3. IBUPROFEN [Concomitant]
     Indication: PAIN

REACTIONS (1)
  - INCORRECT DOSE ADMINISTERED [None]
